FAERS Safety Report 24368418 (Version 3)
Quarter: 2024Q4

REPORT INFORMATION
  Report Type: Spontaneous
  Country: US (occurrence: US)
  Receive Date: 20240926
  Receipt Date: 20241212
  Transmission Date: 20250115
  Serious: No
  Sender: SANOFI AVENTIS
  Company Number: US-SA-2024SA271705

PATIENT
  Age: 49 Year
  Sex: Female

DRUGS (1)
  1. DUPIXENT [Suspect]
     Active Substance: DUPILUMAB
     Indication: Neurodermatitis
     Dosage: 300 MG, QOW
     Route: 058
     Dates: start: 20240624, end: 20240806

REACTIONS (11)
  - Hyperhidrosis [Unknown]
  - Swollen tongue [Unknown]
  - Feeling hot [Unknown]
  - Dyspnoea [Unknown]
  - Dysphagia [Unknown]
  - Mouth swelling [Unknown]
  - Paraesthesia oral [Recovered/Resolved]
  - Dizziness [Unknown]
  - Eye swelling [Recovered/Resolved]
  - Urticaria [Recovered/Resolved]
  - Swelling face [Recovered/Resolved]

NARRATIVE: CASE EVENT DATE: 20240806
